FAERS Safety Report 16612123 (Version 6)
Quarter: 2022Q1

REPORT INFORMATION
  Report Type: Spontaneous
  Country: GB (occurrence: GB)
  Receive Date: 20190722
  Receipt Date: 20220315
  Transmission Date: 20220423
  Serious: Yes (Hospitalization, Other)
  Sender: FDA-Public Use
  Company Number: None

PATIENT
  Age: 12 Year
  Sex: Female
  Weight: 50 kg

DRUGS (8)
  1. METHOTREXATE [Suspect]
     Active Substance: METHOTREXATE
     Indication: Juvenile idiopathic arthritis
     Dosage: 22.5 MG
     Route: 058
     Dates: start: 2008, end: 20190611
  2. METHOTREXATE [Suspect]
     Active Substance: METHOTREXATE
     Dosage: 22.5 MG
     Route: 058
  3. ABATACEPT [Suspect]
     Active Substance: ABATACEPT
     Indication: Juvenile idiopathic arthritis
     Dosage: 10 MG/KG, Q4W
     Route: 042
     Dates: start: 20160505, end: 20190605
  4. ABATACEPT [Suspect]
     Active Substance: ABATACEPT
     Dosage: 10 MG/KG, Q3W
     Route: 042
  5. NAPROXEN [Concomitant]
     Active Substance: NAPROXEN
     Indication: Product used for unknown indication
     Dosage: UNK
     Route: 065
  6. LANSOPRAZOLE [Concomitant]
     Active Substance: LANSOPRAZOLE
     Indication: Product used for unknown indication
     Dosage: UNK
     Route: 065
  7. FOLIC ACID [Concomitant]
     Active Substance: FOLIC ACID
     Indication: Product used for unknown indication
     Dosage: UNK
     Route: 065
  8. PREDNISOLONE [Concomitant]
     Active Substance: PREDNISOLONE
     Indication: Product used for unknown indication
     Dosage: 5 MG, QD
     Route: 065

REACTIONS (11)
  - Personality change [Unknown]
  - Generalised tonic-clonic seizure [Unknown]
  - Demyelination [Unknown]
  - Lymphoma [Unknown]
  - Feeling abnormal [Unknown]
  - Affect lability [Unknown]
  - Progressive multifocal leukoencephalopathy [Unknown]
  - Encephalitis autoimmune [Unknown]
  - Malaise [Unknown]
  - Headache [Unknown]
  - Encephalitis [Unknown]

NARRATIVE: CASE EVENT DATE: 20190610
